FAERS Safety Report 5468507-6 (Version None)
Quarter: 2007Q3

REPORT INFORMATION
  Report Type: 
  Country: None (occurrence: None)
  Receive Date: 20070926
  Receipt Date: 20070727
  Transmission Date: 20080115
  Serious: No
  Sender: FDA-Public Use
  Company Number: US-BRISTOL-MYERS SQUIBB COMPANY-13859665

PATIENT
  Sex: Female
  Weight: 60 kg

DRUGS (8)
  1. ORENCIA [Suspect]
     Indication: RHEUMATOID ARTHRITIS
     Route: 042
  2. METHOTREXATE [Concomitant]
  3. INDOCIN [Concomitant]
  4. FLEXERIL [Concomitant]
  5. XALATAN [Concomitant]
  6. VICODIN [Concomitant]
  7. NEXIUM [Concomitant]
  8. FOLIC ACID [Concomitant]

REACTIONS (3)
  - BURNING SENSATION [None]
  - PRURITUS [None]
  - RASH [None]
